FAERS Safety Report 9681478 (Version 2)
Quarter: 2013Q4

REPORT INFORMATION
  Report Type: Spontaneous
  Country: BR (occurrence: BR)
  Receive Date: 20131111
  Receipt Date: 20131122
  Transmission Date: 20140711
  Serious: Yes (Other)
  Sender: FDA-Public Use
  Company Number: BR-ALLERGAN-1317378US

PATIENT
  Age: 55 Year
  Sex: Female

DRUGS (2)
  1. ACULAR LS [Suspect]
     Indication: POSTOPERATIVE CARE
     Dosage: UNK
     Route: 047
     Dates: start: 201308, end: 201309
  2. ZYPRED [Suspect]
     Indication: POSTOPERATIVE CARE
     Dosage: UNK
     Route: 047
     Dates: start: 201308, end: 201309

REACTIONS (1)
  - Syncope [Recovered/Resolved]
